FAERS Safety Report 20618545 (Version 1)
Quarter: 2022Q1

REPORT INFORMATION
  Report Type: Spontaneous
  Country: CH (occurrence: CH)
  Receive Date: 20220321
  Receipt Date: 20220321
  Transmission Date: 20220423
  Serious: Yes (Hospitalization)
  Sender: FDA-Public Use
  Company Number: CH-ANIPHARMA-2022-CH-000010

PATIENT
  Age: 88 Year
  Sex: Female

DRUGS (10)
  1. CANDESARTAN CILEXETIL [Suspect]
     Active Substance: CANDESARTAN CILEXETIL
     Indication: Product used for unknown indication
     Dosage: 16 MG DAILY
     Route: 065
     Dates: start: 2021
  2. FIG FRUIT OIL\SORBITOL [Concomitant]
     Active Substance: FIG FRUIT OIL\SORBITOL
     Route: 065
     Dates: start: 20211230
  3. QUETIAPINE [Suspect]
     Active Substance: QUETIAPINE
     Dosage: 15 MG, TID (15 MG, MAX 3X/D, AS NECESSARY) / 15 MG, PRN (15 MG, MAX 3X/D, AS NECESSARY)
     Route: 065
     Dates: start: 20211224, end: 20220108
  4. ENOXAPARIN SODIUM [Suspect]
     Active Substance: ENOXAPARIN SODIUM
     Dosage: 40 MG DAILY
     Route: 065
     Dates: start: 20211222
  5. DAFALGAN [Suspect]
     Active Substance: ACETAMINOPHEN
     Dosage: 1500 MG DAILY
     Route: 065
     Dates: start: 20211223, end: 20211227
  6. AMOXICILLIN\CLAVULANATE POTASSIUM [Suspect]
     Active Substance: AMOXICILLIN\CLAVULANATE POTASSIUM
     Dosage: 1.2 G, TID / 625 MG, TID
     Route: 065
     Dates: start: 20211223, end: 20211229
  7. AMLODIPINE [Suspect]
     Active Substance: AMLODIPINE BESYLATE
     Dosage: 10 MG UNK
     Route: 065
     Dates: start: 2021
  8. MAGNESIUM SULFATE [Concomitant]
     Active Substance: MAGNESIUM SULFATE
     Route: 065
     Dates: start: 20211222
  9. FOLIC ACID [Concomitant]
     Active Substance: FOLIC ACID
     Route: 065
     Dates: start: 20211224
  10. VICRIN D3 [Concomitant]
     Route: 065
     Dates: start: 20211223

REACTIONS (1)
  - Cholestasis [Not Recovered/Not Resolved]

NARRATIVE: CASE EVENT DATE: 20211227
